FAERS Safety Report 4309564-X (Version None)
Quarter: 2004Q1

REPORT INFORMATION
  Report Type: 
  Country: None (occurrence: None)
  Receive Date: 20040301
  Receipt Date: 20040218
  Transmission Date: 20041129
  Serious: Yes (Death)
  Sender: FDA-Public Use
  Company Number: US-JNJFOC-20040205005

PATIENT
  Sex: Male

DRUGS (1)
  1. DURAGESIC [Suspect]
     Indication: INTENTIONAL MISUSE
     Dosage: INJECTION

REACTIONS (4)
  - DRUG ABUSER [None]
  - INTENTIONAL MISUSE [None]
  - INTENTIONAL OVERDOSE [None]
  - RESPIRATORY ARREST [None]
